FAERS Safety Report 15707922 (Version 1)
Quarter: 2018Q4

REPORT INFORMATION
  Report Type: Spontaneous
  Country: IN (occurrence: IN)
  Receive Date: 20181211
  Receipt Date: 20181211
  Transmission Date: 20190205
  Serious: Yes (Other)
  Sender: FDA-Public Use
  Company Number: IN-LUPIN LIMITED-2018-08469

PATIENT
  Age: 50 Year
  Sex: Male

DRUGS (2)
  1. ETHAMBUTOL HYDROCHLORIDE + ISONIAZID + PYRAZINAMIDE + RIFAMPICIN [Suspect]
     Active Substance: ETHAMBUTOL HYDROCHLORIDE\ISONIAZID\PYRAZINAMIDE\RIFAMPIN
     Indication: PULMONARY TUBERCULOSIS
     Dosage: UNK (75 MG ISONIAZID, 150 MG RIFAMPICIN, 400 MG PYRAZINAMIDE AND 275 MG ETHAMBUTOL
     Route: 048
  2. RIFAMPIN. [Suspect]
     Active Substance: RIFAMPIN
     Indication: PULMONARY TUBERCULOSIS
     Dosage: UNK
     Route: 048

REACTIONS (5)
  - Dermatitis exfoliative generalised [Recovering/Resolving]
  - Dermatitis exfoliative [Recovering/Resolving]
  - Pruritus [Recovering/Resolving]
  - Oedema peripheral [Recovering/Resolving]
  - Oedema [Recovering/Resolving]
